FAERS Safety Report 5624677-8 (Version None)
Quarter: 2008Q1

REPORT INFORMATION
  Report Type: 
  Country: None (occurrence: None)
  Receive Date: 20080213
  Receipt Date: 20080211
  Transmission Date: 20080703
  Serious: Yes (Hospitalization)
  Sender: FDA-Public Use
  Company Number: A0708706A

PATIENT
  Age: 23 Year
  Sex: Female

DRUGS (4)
  1. ONDANSETRON [Suspect]
     Indication: VOMITING IN PREGNANCY
     Dosage: 8MG PER DAY
     Route: 048
     Dates: start: 20080101
  2. ZOFRAN [Suspect]
     Route: 042
     Dates: start: 20080201
  3. PRENATAL VITAMINS [Concomitant]
  4. PHENERGAN HCL [Concomitant]

REACTIONS (3)
  - DRUG EXPOSURE DURING PREGNANCY [None]
  - HYPEREMESIS GRAVIDARUM [None]
  - VOMITING [None]
